FAERS Safety Report 4278838-3 (Version None)
Quarter: 2004Q1

REPORT INFORMATION
  Report Type: 
  Country: None (occurrence: None)
  Receive Date: 20040122
  Receipt Date: 20040116
  Transmission Date: 20041129
  Serious: Yes (Other)
  Sender: FDA-Public Use
  Company Number: 163-20785-04010509

PATIENT
  Age: 38 Year
  Sex: Male

DRUGS (1)
  1. THALOMID [Suspect]
     Dosage: ORAL
     Route: 048

REACTIONS (1)
  - TRANSMISSION OF DRUG VIA SEMEN [None]
